FAERS Safety Report 23067442 (Version 3)
Quarter: 2023Q4

REPORT INFORMATION
  Report Type: Report from Study
  Country: CN (occurrence: None)
  Receive Date: 20231016
  Receipt Date: 20231115
  Transmission Date: 20240110
  Serious: Yes (Hospitalization)
  Sender: FDA-Public Use
  Company Number: CN-ROCHE-3436482

PATIENT
  Age: 58 Year
  Sex: Female
  Weight: 47.5 kg

DRUGS (6)
  1. TRASTUZUMAB [Suspect]
     Active Substance: TRASTUZUMAB
     Indication: Breast cancer metastatic
     Route: 041
     Dates: start: 20210209, end: 20210617
  2. TRASTUZUMAB [Suspect]
     Active Substance: TRASTUZUMAB
     Route: 041
     Dates: start: 20210709
  3. DOCETAXEL [Suspect]
     Active Substance: DOCETAXEL\DOCETAXEL ANHYDROUS
     Indication: Breast cancer metastatic
     Route: 041
     Dates: start: 20210209, end: 20210617
  4. PYROTINIB MALEATE [Suspect]
     Active Substance: PYROTINIB MALEATE
     Indication: Breast cancer metastatic
     Route: 048
     Dates: start: 20210209, end: 20210317
  5. PYROTINIB MALEATE [Suspect]
     Active Substance: PYROTINIB MALEATE
     Route: 048
     Dates: start: 20210318, end: 20210419
  6. PYROTINIB MALEATE [Suspect]
     Active Substance: PYROTINIB MALEATE
     Route: 048
     Dates: start: 20210420

REACTIONS (1)
  - Bronchitis [Recovered/Resolved]

NARRATIVE: CASE EVENT DATE: 20230925
